FAERS Safety Report 25763950 (Version 1)
Quarter: 2025Q3

REPORT INFORMATION
  Report Type: Spontaneous
  Country: US (occurrence: US)
  Receive Date: 20250905
  Receipt Date: 20250905
  Transmission Date: 20251021
  Serious: No
  Sender: DOMPE FARMACEUTICI
  Company Number: US-FARMAPROD-202411-4037

PATIENT
  Sex: Female
  Weight: 73.48 kg

DRUGS (17)
  1. OXERVATE [Suspect]
     Active Substance: CENEGERMIN-BKBJ
     Indication: Neurotrophic keratopathy
     Route: 047
     Dates: start: 20241112
  2. SOOTHE HYDRATION [Concomitant]
     Active Substance: POVIDONE
  3. CIPROFLOXACIN HYDROCHLORIDE\HYDROCORTISONE [Concomitant]
     Active Substance: CIPROFLOXACIN HYDROCHLORIDE\HYDROCORTISONE
  4. GABAPENTIN [Concomitant]
     Active Substance: GABAPENTIN
  5. ROSUVASTATIN CALCIUM [Concomitant]
     Active Substance: ROSUVASTATIN CALCIUM
  6. METFORMIN HYDROCHLORIDE [Concomitant]
     Active Substance: METFORMIN HYDROCHLORIDE
  7. OMEPRAZOLE [Concomitant]
     Active Substance: OMEPRAZOLE
  8. LANTUS SOLOSTAR [Concomitant]
     Active Substance: INSULIN GLARGINE
  9. CARVEDILOL [Concomitant]
     Active Substance: CARVEDILOL
  10. POTASSIUM CHLORIDE [Concomitant]
     Active Substance: POTASSIUM CHLORIDE
  11. CALCITRIOL [Concomitant]
     Active Substance: CALCITRIOL
  12. ASPIRIN [Concomitant]
     Active Substance: ASPIRIN
  13. LOSARTAN POTASSIUM [Concomitant]
     Active Substance: LOSARTAN POTASSIUM
  14. PIOGLITAZONE [Concomitant]
     Active Substance: PIOGLITAZONE
  15. FUROSEMIDE [Concomitant]
     Active Substance: FUROSEMIDE
  16. PROLIA [Concomitant]
     Active Substance: DENOSUMAB
  17. DOCUSATE SODIUM [Concomitant]
     Active Substance: DOCUSATE SODIUM

REACTIONS (3)
  - Vision blurred [Unknown]
  - Product administration error [Unknown]
  - Ocular discomfort [Unknown]
